FAERS Safety Report 9310300 (Version 3)
Quarter: 2013Q3

REPORT INFORMATION
  Report Type: Spontaneous
  Country: IT (occurrence: IT)
  Receive Date: 20130527
  Receipt Date: 20130807
  Transmission Date: 20140515
  Serious: Yes (Death, Other)
  Sender: FDA-Public Use
  Company Number: IT-PFIZER INC-2013160166

PATIENT
  Age: 66 Year
  Sex: Female

DRUGS (11)
  1. SUTENT [Suspect]
     Indication: RENAL CANCER METASTATIC
     Dosage: 50 MG, 1X/DAY
     Route: 048
     Dates: start: 20130426, end: 20130519
  2. GABAPENTIN [Concomitant]
     Indication: PARAPARESIS
     Dosage: 500 MG, 1X/DAY (EVENING)
     Route: 048
     Dates: start: 20130426, end: 20130519
  3. DEXAMETHASONE [Concomitant]
     Dosage: 8 MG, 1X/DAY (MORNING)
     Route: 048
     Dates: start: 20130426, end: 20130519
  4. LORAZEPAM [Concomitant]
     Dosage: 1 MG, 1X/DAY (EVENING)
     Route: 048
     Dates: start: 20130426, end: 20130519
  5. OMEPRAZOLE [Concomitant]
     Indication: PROPHYLAXIS AGAINST GASTROINTESTINAL ULCER
     Dosage: 20 MG, 1X/DAY (MORNING)
     Route: 048
     Dates: start: 20130306, end: 20130519
  6. CLEXANE [Concomitant]
     Dosage: 1 DF, UNK
     Route: 058
     Dates: start: 20130426, end: 20130519
  7. TAPAZOLE [Concomitant]
     Indication: PARAPARESIS
     Dosage: 5 MG, 1X/DAY
     Route: 048
     Dates: start: 20130426, end: 20130519
  8. TAPAZOLE [Concomitant]
     Indication: THYROID NEOPLASM
  9. SIMVASTATIN [Concomitant]
     Indication: HYPERCHOLESTEROLAEMIA
     Dosage: 20 MG, UNK
     Route: 048
     Dates: end: 20130519
  10. TARGIN [Concomitant]
     Indication: PARAPARESIS
     Dosage: 5 MG, 2X/DAY (ONE IN THE MORNING AND ONE IN THE EVENING)
     Route: 048
     Dates: start: 20130426, end: 20130519
  11. ENOXAPARIN [Concomitant]
     Dosage: 4000 IU, UNK

REACTIONS (11)
  - Sepsis [Fatal]
  - Enteritis [Fatal]
  - Neutropenia [Fatal]
  - Thrombocytopenia [Fatal]
  - Abdominal pain [Fatal]
  - Vomiting [Fatal]
  - Asthenia [Fatal]
  - White blood cell count decreased [Unknown]
  - Amylase increased [Unknown]
  - Blood creatinine increased [Unknown]
  - Blood cholinesterase decreased [Unknown]
